FAERS Safety Report 7951969-X (Version None)
Quarter: 2011Q4

REPORT INFORMATION
  Report Type: 
  Country: None (occurrence: None)
  Receive Date: 20111201
  Receipt Date: 20111122
  Transmission Date: 20120403
  Serious: Yes (Hospitalization)
  Sender: FDA-Public Use
  Company Number: FR-PFIZER INC-2011259886

PATIENT
  Age: 72 Year
  Sex: Female

DRUGS (9)
  1. TERCIAN [Concomitant]
     Dosage: UNK
     Dates: start: 20080101
  2. LOXAPINE HCL [Concomitant]
     Dosage: UNK
     Dates: start: 20080101
  3. CORDARONE [Suspect]
     Indication: PRODUCT USED FOR UNKNOWN INDICATION
     Dosage: 200 MG, DAILY
     Route: 048
     Dates: start: 20100901, end: 20110930
  4. PERINDOPRIL ERBUMINE [Concomitant]
     Dosage: UNK
     Dates: start: 20060101
  5. FUROSEMIDE [Concomitant]
     Dosage: UNK
     Dates: start: 20100901
  6. LEVOTHYROXINE SODIUM [Concomitant]
     Dosage: UNK
     Dates: start: 20080101
  7. NEXIUM [Concomitant]
     Dosage: UNK
     Dates: start: 20080101
  8. PREVISCAN [Concomitant]
     Dosage: UNK
     Dates: start: 20060101
  9. AMOXICILLIN [Concomitant]
     Dosage: UNK
     Dates: start: 20110924

REACTIONS (3)
  - PSEUDOMONAS INFECTION [None]
  - KLEBSIELLA INFECTION [None]
  - LUNG DISORDER [None]
